FAERS Safety Report 23250991 (Version 2)
Quarter: 2023Q4

REPORT INFORMATION
  Report Type: Report from Study
  Country: US (occurrence: US)
  Receive Date: 20231201
  Receipt Date: 20231207
  Transmission Date: 20240109
  Serious: Yes (Other)
  Sender: FDA-Public Use
  Company Number: US-ALXN-A202312378AA

PATIENT
  Sex: Female

DRUGS (2)
  1. STRENSIQ [Suspect]
     Active Substance: ASFOTASE ALFA
     Indication: Hypophosphatasia
     Dosage: UNK
     Route: 065
     Dates: start: 202309
  2. CALCIUM CITRATE [Concomitant]
     Active Substance: CALCIUM CITRATE
     Indication: Product used for unknown indication
     Dosage: 600 MILLIGRAM
     Route: 065

REACTIONS (18)
  - Hypothyroidism [Unknown]
  - Arthralgia [Unknown]
  - Balance disorder [Unknown]
  - Pain [Unknown]
  - Pain in extremity [Unknown]
  - Limb injury [Unknown]
  - Influenza [Unknown]
  - Injection site discharge [Unknown]
  - Muscle spasms [Unknown]
  - Neurological symptom [Unknown]
  - Condition aggravated [Unknown]
  - Arthritis [Unknown]
  - Product preparation error [Unknown]
  - Feeling abnormal [Unknown]
  - Eye disorder [Unknown]
  - Discomfort [Unknown]
  - Injection site erythema [Unknown]
  - Vertigo [Unknown]

NARRATIVE: CASE EVENT DATE: 20230920
